FAERS Safety Report 17204863 (Version 1)
Quarter: 2019Q4

REPORT INFORMATION
  Report Type: Report from Study
  Country: None (occurrence: US)
  Receive Date: 20191226
  Receipt Date: 20191226
  Transmission Date: 20200122
  Serious: Yes (Hospitalization, Other)
  Sender: FDA-Public Use
  Company Number: US-ABBVIE-16K-163-3033698-00

PATIENT
  Age: 76 Year
  Sex: Male

DRUGS (7)
  1. IMBRUVICA [Suspect]
     Active Substance: IBRUTINIB
     Indication: WALDENSTROM^S MACROGLOBULINAEMIA
     Dosage: 420 MG, QD
     Route: 048
     Dates: start: 20150515, end: 20180414
  2. IMBRUVICA [Suspect]
     Active Substance: IBRUTINIB
     Dosage: 420 MG, QD
     Route: 048
     Dates: start: 20180524
  3. IMBRUVICA [Suspect]
     Active Substance: IBRUTINIB
     Dosage: 280 MG, QD
     Route: 048
     Dates: start: 2015
  4. IMBRUVICA [Suspect]
     Active Substance: IBRUTINIB
     Dosage: 420 MG, QD
     Route: 048
     Dates: start: 20180615
  5. IMBRUVICA [Suspect]
     Active Substance: IBRUTINIB
     Dosage: 420 MG, QD
     Route: 048
  6. IMBRUVICA [Suspect]
     Active Substance: IBRUTINIB
     Dosage: 420 MG, QD
     Route: 048
     Dates: start: 201804, end: 20180425
  7. IMBRUVICA [Suspect]
     Active Substance: IBRUTINIB
     Dosage: 280 MG, QD
     Route: 048
     Dates: start: 201709

REACTIONS (42)
  - Sepsis [Recovered/Resolved]
  - Neutrophil count abnormal [Recovered/Resolved]
  - Haematocrit decreased [Unknown]
  - Haemorrhage [Unknown]
  - Blood immunoglobulin M decreased [Recovering/Resolving]
  - Nasal congestion [Not Recovered/Not Resolved]
  - Nail discolouration [Not Recovered/Not Resolved]
  - Dry skin [Not Recovered/Not Resolved]
  - Full blood count abnormal [Recovering/Resolving]
  - Limb discomfort [Unknown]
  - Pyrexia [Recovered/Resolved]
  - Contusion [Unknown]
  - Pneumonia [Recovered/Resolved]
  - Frequent bowel movements [Not Recovered/Not Resolved]
  - Headache [Unknown]
  - Cough [Unknown]
  - Swelling [Not Recovered/Not Resolved]
  - Scratch [Unknown]
  - Rash papular [Not Recovered/Not Resolved]
  - Platelet count decreased [Not Recovered/Not Resolved]
  - Clostridium difficile infection [Recovered/Resolved]
  - Immune system disorder [Recovered/Resolved]
  - Balance disorder [Unknown]
  - Furuncle [Not Recovered/Not Resolved]
  - Lymphocyte count increased [Recovered/Resolved]
  - Haemoglobin decreased [Unknown]
  - Product blister packaging issue [Unknown]
  - Asthenia [Recovering/Resolving]
  - Increased tendency to bruise [Not Recovered/Not Resolved]
  - Pruritus [Unknown]
  - Onychoclasis [Not Recovered/Not Resolved]
  - Acne [Unknown]
  - Incorrect dose administered [Unknown]
  - Rash pruritic [Not Recovered/Not Resolved]
  - Renal cyst [Unknown]
  - Pleural effusion [Unknown]
  - Protein total decreased [Not Recovered/Not Resolved]
  - Blood creatine abnormal [Not Recovered/Not Resolved]
  - Weight decreased [Recovered/Resolved]
  - Blood pressure systolic increased [Not Recovered/Not Resolved]
  - Nasopharyngitis [Unknown]
  - Erythema [Not Recovered/Not Resolved]

NARRATIVE: CASE EVENT DATE: 201509
